FAERS Safety Report 8933538 (Version 2)
Quarter: 2013Q1

REPORT INFORMATION
  Report Type: Report from Study
  Country: US (occurrence: US)
  Receive Date: 20121128
  Receipt Date: 20130228
  Transmission Date: 20140127
  Serious: No
  Sender: FDA-Public Use
  Company Number: US-ABBOTT-12P-163-1004884-00

PATIENT
  Sex: Male
  Weight: 113.5 kg

DRUGS (8)
  1. ANDROGEL [Suspect]
     Indication: BLOOD TESTOSTERONE DECREASED
     Route: 061
     Dates: start: 201209, end: 20121027
  2. ANDROGEL [Suspect]
     Dates: start: 20121102
  3. CAPTOPRIL [Concomitant]
     Indication: HYPERTENSION
  4. TRAMADOL [Concomitant]
     Indication: ARTHRALGIA
  5. SIMVASTATIN [Concomitant]
     Indication: BLOOD CHOLESTEROL INCREASED
  6. POTASSIUM [Concomitant]
     Indication: PRODUCT USED FOR UNKNOWN INDICATION
  7. HYDROCHLOROTHIAZIDE [Concomitant]
     Indication: HYPERTENSION
  8. METOPROLOL [Concomitant]
     Indication: HYPERTENSION

REACTIONS (1)
  - Abnormal dreams [Not Recovered/Not Resolved]
